FAERS Safety Report 7481209-X (Version None)
Quarter: 2011Q2

REPORT INFORMATION
  Report Type: 
  Country: None (occurrence: None)
  Receive Date: 20110516
  Receipt Date: 20110502
  Transmission Date: 20111010
  Serious: Yes (Hospitalization, Other)
  Sender: FDA-Public Use
  Company Number: US-ELI_LILLY_AND_COMPANY-US201008003865

PATIENT
  Sex: Female

DRUGS (15)
  1. DORZOLAMIDE [Concomitant]
     Dosage: UNK, 2/D
  2. FORTEO [Suspect]
     Indication: OSTEOPOROSIS
     Dosage: 20 UG, DAILY (1/D)
  3. FLUOXETINE [Concomitant]
     Dosage: 20 UG, DAILY (1/D)
  4. MEGESTROL ACETATE [Concomitant]
     Dosage: 40 MG, DAILY (1/D)
  5. AMITRIPTYLINE HCL [Concomitant]
     Dosage: 50 MG, EACH EVENING
     Dates: start: 20100610
  6. BUSPIRONE HCL [Concomitant]
     Dosage: 5 MG, DAILY (1/D)
  7. VITAMIN D [Concomitant]
     Dosage: 50000 U, WEEKLY (1/W)
     Dates: start: 20100429
  8. TYLENOL (CAPLET) [Concomitant]
  9. SERTRALINE HYDROCHLORIDE [Concomitant]
     Dosage: 25 MG, DAILY (1/D)
  10. TRAVATAN [Concomitant]
     Dosage: UNK, DAILY (1/D)
  11. FEMARA [Concomitant]
     Dosage: 2.5 MG, DAILY (1/D)
     Dates: start: 20090522
  12. OXYCODONE HCL AND ACETAMINOPHEN [Concomitant]
     Dosage: UNK, AS NEEDED
  13. MULTI-VITAMIN [Concomitant]
     Dosage: UNK, DAILY (1/D)
     Route: 048
  14. CALCIUM [Concomitant]
     Dosage: 600 MG, UNK
     Dates: start: 20060815
  15. VICODIN [Concomitant]
     Indication: PAIN
     Dates: start: 20100429

REACTIONS (16)
  - JAW FRACTURE [None]
  - INJECTION SITE PAIN [None]
  - SUBDURAL HAEMATOMA [None]
  - HEADACHE [None]
  - ARTHRALGIA [None]
  - FACIAL BONES FRACTURE [None]
  - VISUAL ACUITY REDUCED [None]
  - SURGERY [None]
  - DEMENTIA [None]
  - CEREBRAL HAEMORRHAGE [None]
  - BLINDNESS [None]
  - ABDOMINAL PAIN UPPER [None]
  - FALL [None]
  - NERVOUS SYSTEM DISORDER [None]
  - GENERAL PHYSICAL HEALTH DETERIORATION [None]
  - BACK PAIN [None]
